FAERS Safety Report 4319120-5 (Version None)
Quarter: 2004Q1

REPORT INFORMATION
  Report Type: 
  Country: None (occurrence: None)
  Receive Date: 20040316
  Receipt Date: 20040301
  Transmission Date: 20041129
  Serious: Yes (Hospitalization)
  Sender: FDA-Public Use
  Company Number: 2004AP01263

PATIENT
  Age: 90 Year
  Sex: Female

DRUGS (7)
  1. IRESSA [Suspect]
     Indication: NON-SMALL CELL LUNG CANCER RECURRENT
     Dosage: 250 MG DAILY PO
     Dates: start: 20031014, end: 20031029
  2. IRESSA [Suspect]
     Dosage: 250 MG DAILY PO
     Dates: start: 20031014, end: 20031029
  3. NIVADIL [Concomitant]
  4. BERIZYM [Concomitant]
  5. BIO THREE [Concomitant]
  6. LASIX [Concomitant]
  7. SLOW-FE [Concomitant]

REACTIONS (1)
  - CLOSTRIDIUM COLITIS [None]
